FAERS Safety Report 13641427 (Version 2)
Quarter: 2017Q2

REPORT INFORMATION
  Report Type: Report from Study
  Country: US (occurrence: US)
  Receive Date: 20170612
  Receipt Date: 20170629
  Transmission Date: 20170830
  Serious: Yes (Hospitalization)
  Sender: FDA-Public Use
  Company Number: US-GILEAD-2017-0273274

PATIENT
  Age: 54 Year
  Sex: Female

DRUGS (28)
  1. LORATADINE. [Concomitant]
     Active Substance: LORATADINE
  2. MEDROXYPROGESTERON [Concomitant]
  3. NABUMETONE. [Concomitant]
     Active Substance: NABUMETONE
  4. TRIAMCINOLONE [Concomitant]
     Active Substance: TRIAMCINOLONE
  5. CYMBALTA [Concomitant]
     Active Substance: DULOXETINE HYDROCHLORIDE
  6. DULOXETINE. [Concomitant]
     Active Substance: DULOXETINE
  7. QUETIAPINE. [Concomitant]
     Active Substance: QUETIAPINE
  8. ADCIRCA [Concomitant]
     Active Substance: TADALAFIL
  9. PROPANOLOL                         /00030001/ [Concomitant]
     Active Substance: PROPRANOLOL HYDROCHLORIDE
  10. TRAMADOL. [Concomitant]
     Active Substance: TRAMADOL
  11. AMBRISENTAN [Suspect]
     Active Substance: AMBRISENTAN
     Indication: SUBSTANCE USE DISORDER
  12. TADALAFIL [Concomitant]
     Active Substance: TADALAFIL
  13. IPRATROPIUM [Concomitant]
     Active Substance: IPRATROPIUM
  14. CETIRIZINE [Concomitant]
     Active Substance: CETIRIZINE HYDROCHLORIDE
  15. DICYCLOMINE                        /00068601/ [Concomitant]
     Active Substance: DICYCLOMINE HYDROCHLORIDE
  16. AMBRISENTAN [Suspect]
     Active Substance: AMBRISENTAN
     Indication: PULMONARY HYPERTENSION
     Dosage: 5 MG, QD
     Route: 065
     Dates: start: 20161223
  17. DICLOFENAC [Concomitant]
     Active Substance: DICLOFENAC
  18. MELATONIN [Concomitant]
     Active Substance: MELATONIN
  19. NAPROXEN. [Concomitant]
     Active Substance: NAPROXEN
  20. SINGULAIR [Concomitant]
     Active Substance: MONTELUKAST SODIUM
  21. BUPROPION. [Concomitant]
     Active Substance: BUPROPION
  22. GABAPENTINE [Concomitant]
     Active Substance: GABAPENTIN
  23. ADVAIR HFA [Concomitant]
     Active Substance: FLUTICASONE PROPIONATE\SALMETEROL XINAFOATE
  24. ALBUTEROL                          /00139501/ [Concomitant]
     Active Substance: ALBUTEROL
  25. ERGOCALCIFEROL. [Concomitant]
     Active Substance: ERGOCALCIFEROL
  26. OMEPRAZOLE. [Concomitant]
     Active Substance: OMEPRAZOLE
  27. DOCUSATE SODIUM. [Concomitant]
     Active Substance: DOCUSATE SODIUM
  28. PROVERA [Concomitant]
     Active Substance: MEDROXYPROGESTERONE ACETATE

REACTIONS (1)
  - Mental disorder [Unknown]
